FAERS Safety Report 5432029-9 (Version None)
Quarter: 2007Q3

REPORT INFORMATION
  Report Type: 
  Country: None (occurrence: None)
  Receive Date: 20070830
  Receipt Date: 20070829
  Transmission Date: 20080115
  Serious: No
  Sender: FDA-Public Use
  Company Number: US-BOEHRINGER INGELHEIM PHARMACEUTICALS, INC.-2005-BP-04552BP

PATIENT
  Sex: Female

DRUGS (6)
  1. MICARDIS [Suspect]
     Indication: HYPERTENSION
     Route: 048
     Dates: start: 20040407, end: 20050310
  2. COREG [Suspect]
     Indication: HYPERTENSION
     Dosage: 12.5 MG PM/3.125 AM
     Route: 048
     Dates: start: 20030901
  3. SYNTHROID [Concomitant]
  4. ASPIRIN [Concomitant]
  5. FUROSEMIDE [Concomitant]
  6. PRAVACHOL [Concomitant]

REACTIONS (6)
  - ALOPECIA [None]
  - BLOOD CREATININE INCREASED [None]
  - BLOOD UREA INCREASED [None]
  - DYSPHONIA [None]
  - PRURITUS [None]
  - SOMNOLENCE [None]
